FAERS Safety Report 5000020-2 (Version None)
Quarter: 2006Q2

REPORT INFORMATION
  Report Type: 
  Country: None (occurrence: None)
  Receive Date: 20060509
  Receipt Date: 20060425
  Transmission Date: 20061013
  Serious: Yes (Life-Threatening)
  Sender: FDA-Public Use
  Company Number: FR 2006 0062

PATIENT
  Age: 53 Year
  Sex: Male

DRUGS (1)
  1. DOTAREM -MEGLUMINE GADOTERATE (DOTAREM) [Suspect]
     Indication: NUCLEAR MAGNETIC RESONANCE IMAGING
     Dosage: 10 ML PER DAY INTRA-VEINOUS
     Route: 042
     Dates: start: 20060420

REACTIONS (5)
  - EPISTAXIS [None]
  - HYPOTENSION [None]
  - MALAISE [None]
  - PHARYNGEAL OEDEMA [None]
  - URTICARIA [None]
